FAERS Safety Report 4950142-7 (Version None)
Quarter: 2006Q1

REPORT INFORMATION
  Report Type: 
  Country: None (occurrence: None)
  Receive Date: 20060315
  Receipt Date: 20060306
  Transmission Date: 20060701
  Serious: Yes (Hospitalization)
  Sender: FDA-Public Use
  Company Number: 200610345BYL

PATIENT
  Age: 66 Year
  Sex: Male

DRUGS (2)
  1. AVELOX [Suspect]
     Indication: CONDITION AGGRAVATED
     Dosage: 400 MG, QD, ORAL
     Route: 048
     Dates: start: 20060113, end: 20060210
  2. AVELOX [Suspect]
     Indication: OTITIS MEDIA CHRONIC
     Dosage: 400 MG, QD, ORAL
     Route: 048
     Dates: start: 20060113, end: 20060210

REACTIONS (5)
  - LIVER DISORDER [None]
  - LUNG INFILTRATION [None]
  - LYMPHOCYTE STIMULATION TEST POSITIVE [None]
  - PNEUMONIA [None]
  - PNEUMONITIS [None]
